FAERS Safety Report 19614891 (Version 1)
Quarter: 2021Q3

REPORT INFORMATION
  Report Type: Spontaneous
  Country: US (occurrence: US)
  Receive Date: 20210727
  Receipt Date: 20210727
  Transmission Date: 20211014
  Serious: No
  Sender: FDA-Public Use
  Company Number: US-GILEAD-2021-0541914

PATIENT

DRUGS (3)
  1. VEMLIDY [Suspect]
     Active Substance: TENOFOVIR ALAFENAMIDE FUMARATE
     Indication: HEPATITIS B
     Dosage: UNKNOWN
     Route: 065
  2. VEMLIDY [Suspect]
     Active Substance: TENOFOVIR ALAFENAMIDE FUMARATE
     Dosage: REDUCED TO 2 OFF WEK CYCLE
     Route: 065
  3. IBRANCE [Concomitant]
     Active Substance: PALBOCICLIB
     Dosage: 100 MG
     Dates: start: 20210128

REACTIONS (2)
  - Off label use [Not Recovered/Not Resolved]
  - Product physical issue [Recovered/Resolved]
